FAERS Safety Report 19403323 (Version 1)
Quarter: 2021Q2

REPORT INFORMATION
  Report Type: Spontaneous
  Country: US (occurrence: US)
  Receive Date: 20210610
  Receipt Date: 20210610
  Transmission Date: 20210717
  Serious: No
  Sender: FDA-Public Use
  Company Number: None

PATIENT
  Age: 60 Year
  Sex: Male
  Weight: 64.35 kg

DRUGS (5)
  1. BERBERINE [Concomitant]
     Active Substance: BERBERINE
  2. PRALUENT [Suspect]
     Active Substance: ALIROCUMAB
     Indication: BLOOD CHOLESTEROL
     Dosage: ?          OTHER FREQUENCY:EVERY 14 DAYS;?
     Route: 058
     Dates: start: 20201229
  3. OMEGA 3 ALGAE OIL [Concomitant]
  4. VITAMIN D3 [Concomitant]
     Active Substance: CHOLECALCIFEROL
  5. NIACIN EXTENDED RELEASE [Concomitant]
     Active Substance: NIACIN

REACTIONS (3)
  - Pain in extremity [None]
  - Flatulence [None]
  - Arthralgia [None]

NARRATIVE: CASE EVENT DATE: 20210107
